FAERS Safety Report 8008908-5 (Version None)
Quarter: 2011Q4

REPORT INFORMATION
  Report Type: 
  Country: None (occurrence: None)
  Receive Date: 20111221
  Receipt Date: 20111110
  Transmission Date: 20120403
  Serious: No
  Sender: FDA-Public Use
  Company Number: 2011-US-0148

PATIENT
  Age: 33 Year
  Sex: Female
  Weight: 83.9154 kg

DRUGS (3)
  1. OXYCONTIN [Concomitant]
  2. SOLU-MEDROL [Concomitant]
  3. ABSTRAL [Suspect]
     Indication: BREAKTHROUGH PAIN
     Dosage: 4 TABS TID SUBLINGUAL
     Route: 060
     Dates: start: 20111103

REACTIONS (3)
  - PRODUCT QUALITY ISSUE [None]
  - OFF LABEL USE [None]
  - DRUG INEFFECTIVE [None]
